FAERS Safety Report 9399959 (Version 6)
Quarter: 2014Q1

REPORT INFORMATION
  Report Type: Spontaneous
  Country: US (occurrence: US)
  Receive Date: 20130715
  Receipt Date: 20140102
  Transmission Date: 20141002
  Serious: Yes (Other)
  Sender: FDA-Public Use
  Company Number: US-PFIZER INC-2013204403

PATIENT
  Age: 49 Year
  Sex: Female
  Weight: 90.7 kg

DRUGS (3)
  1. LYRICA [Suspect]
     Indication: FIBROMYALGIA
     Dosage: 200 MG, 2X/DAY
     Dates: start: 2008, end: 2013
  2. LYRICA [Suspect]
     Indication: CONVULSION
     Dosage: UNKNOWN DOSAGE
  3. LISINOPRIL [Concomitant]
     Indication: HYPERTENSION
     Dosage: UNK

REACTIONS (9)
  - Convulsion [Unknown]
  - Pneumonia [Unknown]
  - Dyspnoea [Unknown]
  - Speech disorder [Unknown]
  - Muscle twitching [Not Recovered/Not Resolved]
  - Dyskinesia [Not Recovered/Not Resolved]
  - Dysphemia [Not Recovered/Not Resolved]
  - White blood cell count increased [Unknown]
  - Neuropathy peripheral [Unknown]
